FAERS Safety Report 6235527 (Version 2)
Quarter: 2016Q1

REPORT INFORMATION
  Report Type: Spontaneous
  Country: NO (occurrence: NO)
  Receive Date: 20070126
  Receipt Date: 20160311
  Transmission Date: 20160526
  Serious: Yes (Hospitalization)
  Sender: FDA-Public Use
  Company Number: GXKR2007NO00709

PATIENT
  Age: 81 Year
  Sex: Female

DRUGS (4)
  1. GLIMEPIRIDE. [Concomitant]
     Active Substance: GLIMEPIRIDE
     Indication: DIABETES MELLITUS
     Route: 065
  2. LISINOPRIL. [Suspect]
     Active Substance: LISINOPRIL
     Indication: HYPERTENSION
     Dosage: 20 MG, UNK
     Route: 065
  3. HYDROCHLOROTHIAZIDE. [Concomitant]
     Active Substance: HYDROCHLOROTHIAZIDE
     Indication: HYPERTENSION
     Route: 065
  4. METFORMIN [Suspect]
     Active Substance: METFORMIN HYDROCHLORIDE
     Indication: TYPE 2 DIABETES MELLITUS
     Dosage: 3 G, UNK
     Route: 065

REACTIONS (12)
  - Lactic acidosis [Recovering/Resolving]
  - Haematemesis [Recovering/Resolving]
  - Blood pressure decreased [Recovering/Resolving]
  - Diarrhoea [Recovering/Resolving]
  - Hypotension [Recovering/Resolving]
  - Vomiting [Recovering/Resolving]
  - Malaise [Recovering/Resolving]
  - Abdominal pain [Recovering/Resolving]
  - Hypoventilation [Recovering/Resolving]
  - Renal failure [Recovering/Resolving]
  - Rectal haemorrhage [Recovering/Resolving]
  - Hypothermia [Recovering/Resolving]
